FAERS Safety Report 5423999-3 (Version None)
Quarter: 2007Q3

REPORT INFORMATION
  Report Type: 
  Country: None (occurrence: None)
  Receive Date: 20070823
  Receipt Date: 20070815
  Transmission Date: 20080115
  Serious: Yes (Hospitalization, Other)
  Sender: FDA-Public Use
  Company Number: US-PFIZER INC-2007044484

PATIENT
  Sex: Female
  Weight: 53.5 kg

DRUGS (1)
  1. CELEBREX [Suspect]

REACTIONS (7)
  - AMNESIA [None]
  - ANXIETY [None]
  - BLINDNESS [None]
  - CARDIOVASCULAR DISORDER [None]
  - CEREBROVASCULAR ACCIDENT [None]
  - DYSENTERY [None]
  - MUSCULAR WEAKNESS [None]
